FAERS Safety Report 19983278 (Version 7)
Quarter: 2025Q2

REPORT INFORMATION
  Report Type: Report from Study
  Country: US (occurrence: US)
  Receive Date: 20211021
  Receipt Date: 20250501
  Transmission Date: 20250716
  Serious: Yes (Other)
  Sender: TAKEDA
  Company Number: US-TAKEDA-US202026590

PATIENT
  Age: 72 Year
  Sex: Female

DRUGS (4)
  1. HUMAN IMMUNOGLOBULIN G [Suspect]
     Active Substance: HUMAN IMMUNOGLOBULIN G
     Indication: Primary immunodeficiency syndrome
     Dosage: 30 GRAM, Q3WEEKS
  2. HUMAN IMMUNOGLOBULIN G [Suspect]
     Active Substance: HUMAN IMMUNOGLOBULIN G
     Indication: Immunodeficiency common variable
     Dosage: 30 GRAM, Q4WEEKS
  3. HUMAN IMMUNOGLOBULIN G [Suspect]
     Active Substance: HUMAN IMMUNOGLOBULIN G
     Dosage: 30 GRAM, MONTHLY
  4. HUMAN IMMUNOGLOBULIN G [Suspect]
     Active Substance: HUMAN IMMUNOGLOBULIN G

REACTIONS (22)
  - Autoimmune disorder [Unknown]
  - Psoriatic arthropathy [Unknown]
  - Psoriasis [Unknown]
  - Skin discolouration [Unknown]
  - Incorrect drug administration rate [Unknown]
  - Dermatitis allergic [Unknown]
  - Pain in extremity [Unknown]
  - Pruritus [Unknown]
  - Liver function test abnormal [Unknown]
  - Arthritis [Unknown]
  - Pigmentation disorder [Unknown]
  - Blood iron decreased [Unknown]
  - Peripheral swelling [Unknown]
  - Inflammation [Unknown]
  - Sensation of foreign body [Unknown]
  - Weight increased [Unknown]
  - Stomatitis [Unknown]
  - Pain [Unknown]
  - Dyspnoea [Unknown]
  - Rash [Unknown]
  - Cough [Unknown]
  - Fatigue [Unknown]

NARRATIVE: CASE EVENT DATE: 20211012
